FAERS Safety Report 25771626 (Version 1)
Quarter: 2025Q3

REPORT INFORMATION
  Report Type: Spontaneous
  Country: US (occurrence: US)
  Receive Date: 20250908
  Receipt Date: 20250908
  Transmission Date: 20251021
  Serious: No
  Sender: DOMPE FARMACEUTICI
  Company Number: US-FARMAPROD-202505-1531

PATIENT
  Sex: Female

DRUGS (16)
  1. OXERVATE [Suspect]
     Active Substance: CENEGERMIN-BKBJ
     Indication: Neurotrophic keratopathy
     Route: 047
     Dates: start: 20250421
  2. OXERVATE [Suspect]
     Active Substance: CENEGERMIN-BKBJ
  3. VITAMIN D3 [Concomitant]
     Active Substance: CHOLECALCIFEROL
  4. VITAMIN C [Concomitant]
     Active Substance: ASCORBIC ACID
  5. COENZYME Q10 [Concomitant]
     Active Substance: DIETARY SUPPLEMENT\UBIDECARENONE
  6. VITAMINS [Concomitant]
     Active Substance: VITAMINS
  7. TYRVAYA [Concomitant]
     Active Substance: VARENICLINE TARTRATE
  8. PREDNISOLONE [Concomitant]
     Active Substance: PREDNISOLONE
  9. CARVEDILOL [Concomitant]
     Active Substance: CARVEDILOL
  10. FLECAINIDE ACETATE [Concomitant]
     Active Substance: FLECAINIDE ACETATE
  11. AMLODIPINE BESYLATE [Concomitant]
     Active Substance: AMLODIPINE BESYLATE
  12. FAMOTIDINE [Concomitant]
     Active Substance: FAMOTIDINE
  13. HYDROXYCHLOROQUINE SULFATE [Concomitant]
     Active Substance: HYDROXYCHLOROQUINE SULFATE
  14. METHOTREXATE [Concomitant]
     Active Substance: METHOTREXATE
  15. ATORVASTATIN CALCIUM [Concomitant]
     Active Substance: ATORVASTATIN CALCIUM
  16. VEVYE [Concomitant]
     Active Substance: CYCLOSPORINE

REACTIONS (5)
  - Headache [Not Recovered/Not Resolved]
  - Periorbital pain [Not Recovered/Not Resolved]
  - Eye irritation [Unknown]
  - Eye pain [Unknown]
  - Foreign body sensation in eyes [Unknown]
